FAERS Safety Report 18781474 (Version 1)
Quarter: 2021Q1

REPORT INFORMATION
  Report Type: Spontaneous
  Country: NO (occurrence: NO)
  Receive Date: 20210125
  Receipt Date: 20210125
  Transmission Date: 20210419
  Serious: Yes (Other)
  Sender: FDA-Public Use
  Company Number: NO-LEO PHARMA-334182

PATIENT
  Age: 61 Year
  Sex: Female
  Weight: 75 kg

DRUGS (2)
  1. FINACEA [Suspect]
     Active Substance: AZELAIC ACID
     Indication: PRODUCT USED FOR UNKNOWN INDICATION
     Route: 003
  2. MELATONIN [Concomitant]
     Active Substance: MELATONIN
     Indication: PRODUCT USED FOR UNKNOWN INDICATION
     Dosage: AS REQUIRED
     Route: 048

REACTIONS (29)
  - Hypoaesthesia [Recovering/Resolving]
  - Dermatitis contact [Unknown]
  - Application site exfoliation [Unknown]
  - Pruritus [Recovering/Resolving]
  - Dry skin [Recovering/Resolving]
  - Asthma [Unknown]
  - Application site erythema [Unknown]
  - Dyspnoea [Unknown]
  - Skin irritation [Unknown]
  - Erythema [Recovering/Resolving]
  - Eye swelling [Unknown]
  - Application site oedema [Unknown]
  - Application site discomfort [Unknown]
  - Application site dryness [Unknown]
  - Pain [Unknown]
  - Angioedema [Unknown]
  - Swelling face [Recovering/Resolving]
  - Hypersensitivity [Unknown]
  - Application site paraesthesia [Unknown]
  - Acne [Unknown]
  - Application site rash [Unknown]
  - Application site urticaria [Unknown]
  - Dyspnoea [Recovering/Resolving]
  - Application site burn [Unknown]
  - Burning sensation [Recovering/Resolving]
  - Application site discolouration [Unknown]
  - Urticaria [Unknown]
  - Application site pruritus [Unknown]
  - Application site warmth [Unknown]

NARRATIVE: CASE EVENT DATE: 20201030
